FAERS Safety Report 4903714-X (Version None)
Quarter: 2006Q1

REPORT INFORMATION
  Report Type: 
  Country: None (occurrence: None)
  Receive Date: 20060208
  Receipt Date: 20050121
  Transmission Date: 20060701
  Serious: Yes (Life-Threatening)
  Sender: FDA-Public Use
  Company Number: US-SANOFI-SYNTHELABO-D01200500580

PATIENT
  Sex: Male
  Weight: 94 kg

DRUGS (16)
  1. RASBURICASE [Suspect]
     Indication: HYPERURICAEMIA
     Route: 042
     Dates: start: 20050113, end: 20050115
  2. ALLOPURINOL [Suspect]
     Route: 048
     Dates: start: 20050115, end: 20050117
  3. CYTARABINE [Concomitant]
     Indication: CHEMOTHERAPY
     Dosage: UNK
     Route: 065
     Dates: start: 20050113, end: 20050117
  4. MITOXANTRONE [Concomitant]
     Indication: CHEMOTHERAPY
     Dosage: UNK
     Route: 065
     Dates: start: 20050114, end: 20050114
  5. ZOSYN [Concomitant]
     Dosage: UNK
     Route: 065
     Dates: start: 20050111, end: 20050111
  6. GENTAMICIN [Concomitant]
     Dosage: UNK
     Route: 065
     Dates: start: 20050111, end: 20050111
  7. FORTAZ [Concomitant]
     Dosage: UNK
     Route: 065
     Dates: start: 20050111
  8. VANCOMYCIN [Concomitant]
     Dosage: UNK
     Route: 065
     Dates: start: 20050111, end: 20050119
  9. ACYCLOVIR [Concomitant]
     Dosage: UNK
     Route: 065
     Dates: start: 20050112, end: 20050118
  10. VORICONAZOLE [Concomitant]
     Dosage: UNK
     Route: 065
     Dates: start: 20050115, end: 20050118
  11. LASIX [Concomitant]
     Dosage: UNK
     Route: 065
     Dates: start: 20050115, end: 20050119
  12. TYLENOL [Concomitant]
     Dosage: UNK
     Route: 065
     Dates: start: 20050111, end: 20050118
  13. PERCOCET [Concomitant]
     Dosage: UNK
     Route: 065
     Dates: start: 20050111, end: 20050116
  14. AMBIEN [Concomitant]
     Dosage: UNK
     Route: 065
     Dates: start: 20050112, end: 20050116
  15. BENADRYL [Concomitant]
     Dosage: UNK
     Route: 065
     Dates: start: 20050115, end: 20050119
  16. DEMEROL [Concomitant]
     Dosage: UNK
     Route: 065
     Dates: start: 20050115, end: 20050115

REACTIONS (10)
  - ALANINE AMINOTRANSFERASE INCREASED [None]
  - ANTI-HBS ANTIBODY POSITIVE [None]
  - ASPARTATE AMINOTRANSFERASE INCREASED [None]
  - BLOOD LACTATE DEHYDROGENASE INCREASED [None]
  - CONFUSIONAL STATE [None]
  - COUGH [None]
  - DYSPNOEA [None]
  - LIVER FUNCTION TEST ABNORMAL [None]
  - MUSCLE TWITCHING [None]
  - PYREXIA [None]
